FAERS Safety Report 18268205 (Version 1)
Quarter: 2020Q3

REPORT INFORMATION
  Report Type: Spontaneous
  Country: PL (occurrence: PL)
  Receive Date: 20200915
  Receipt Date: 20200915
  Transmission Date: 20201103
  Serious: Yes (Other)
  Sender: FDA-Public Use
  Company Number: PL-PFIZER INC-2020348727

PATIENT
  Age: 66 Year
  Sex: Female

DRUGS (2)
  1. DOXORUBICIN HCL [Suspect]
     Active Substance: DOXORUBICIN HYDROCHLORIDE
     Indication: BREAST CANCER FEMALE
     Dosage: UNK
     Route: 065
  2. TAMOXIFEN [Suspect]
     Active Substance: TAMOXIFEN
     Indication: BREAST CANCER FEMALE
     Dosage: 20 MG, 1X/DAY (QD) (FOR 5 YEARS)
     Route: 065

REACTIONS (4)
  - Lymph node pain [Recovering/Resolving]
  - Neoplasm progression [Unknown]
  - Spinal pain [Recovered/Resolved]
  - Lymphadenopathy [Recovering/Resolving]
